FAERS Safety Report 8035481-8 (Version None)
Quarter: 2012Q1

REPORT INFORMATION
  Report Type: 
  Country: None (occurrence: None)
  Receive Date: 20120110
  Receipt Date: 20120110
  Transmission Date: 20120608
  Serious: No
  Sender: FDA-Public Use
  Company Number: None

PATIENT
  Sex: Female
  Weight: 75 kg

DRUGS (25)
  1. IFOSFAMIDE [Suspect]
  2. IRON [Concomitant]
  3. IBUPROFEN [Concomitant]
  4. FLAXSEED OIL [Concomitant]
  5. IMODIUM [Concomitant]
  6. MULTI-VITAMIN [Concomitant]
  7. CALCIUM D [Concomitant]
  8. ACETAMINOPHEN [Concomitant]
  9. VITAMIN B COMPLEX CAP [Concomitant]
  10. VITAMIN C [Concomitant]
  11. NEULASTA [Suspect]
     Dosage: 6 MG
  12. GENTLESORB [Concomitant]
  13. MIRALAX [Concomitant]
  14. IFOSFAMIDE [Suspect]
     Dosage: 10.8 G
  15. ASPIRIN [Concomitant]
  16. ATIVAN [Concomitant]
  17. BAKING SODA WITH WARM WATER [Concomitant]
  18. GEORGES SOLUTION [Concomitant]
  19. GLUCOSAMINE [Concomitant]
  20. WELLBUTRIN [Concomitant]
  21. AMBIEN [Concomitant]
  22. ONDANSETRON [Concomitant]
  23. PROMETHAZINE [Concomitant]
  24. TAXOL [Suspect]
     Dosage: 319 MG
  25. VALIUM [Concomitant]

REACTIONS (2)
  - NEUTROPHIL COUNT DECREASED [None]
  - LYMPHOPENIA [None]
